FAERS Safety Report 10967009 (Version 2)
Quarter: 2015Q2

REPORT INFORMATION
  Report Type: Spontaneous
  Country: US (occurrence: US)
  Receive Date: 20150330
  Receipt Date: 20150524
  Transmission Date: 20150821
  Serious: No
  Sender: FDA-Public Use
  Company Number: US-009507513-1503USA007615

PATIENT
  Sex: Female

DRUGS (1)
  1. NEXPLANON [Suspect]
     Active Substance: ETONOGESTREL
     Indication: CONTRACEPTION
     Dosage: 68MG/1 ROD PER 3 YEARS
     Route: 059
     Dates: start: 201411

REACTIONS (2)
  - Ovarian cyst [Unknown]
  - Menorrhagia [Not Recovered/Not Resolved]

NARRATIVE: CASE EVENT DATE: 201411
